FAERS Safety Report 25371338 (Version 1)
Quarter: 2025Q2

REPORT INFORMATION
  Report Type: Spontaneous
  Country: JP (occurrence: JP)
  Receive Date: 20250529
  Receipt Date: 20250529
  Transmission Date: 20250717
  Serious: Yes (Hospitalization, Other)
  Sender: INGENUS
  Company Number: JP-INGENUS PHARMACEUTICALS NJ, LLC-2025ING000035

PATIENT
  Age: 55 Year
  Sex: Male

DRUGS (1)
  1. MAGNESIUM OXIDE [Suspect]
     Active Substance: MAGNESIUM OXIDE
     Indication: Constipation
     Route: 065

REACTIONS (5)
  - Hypermagnesaemia [Recovered/Resolved]
  - Encephalopathy [Recovered/Resolved]
  - Respiratory depression [Recovered/Resolved]
  - Prescribed overdose [Unknown]
  - Product use in unapproved indication [Unknown]
